FAERS Safety Report 21937314 (Version 1)
Quarter: 2023Q1

REPORT INFORMATION
  Report Type: Spontaneous
  Country: GB (occurrence: GB)
  Receive Date: 20230201
  Receipt Date: 20230201
  Transmission Date: 20230418
  Serious: Yes (Other)
  Sender: FDA-Public Use
  Company Number: None

PATIENT
  Age: 10 Year
  Sex: Female
  Weight: 47 kg

DRUGS (9)
  1. MONTELUKAST [Suspect]
     Active Substance: MONTELUKAST SODIUM
     Indication: Product used for unknown indication
     Dosage: 5 MILLIGRAM DAILY; AT NIGHT,
     Route: 048
     Dates: start: 20221215
  2. BECLOMETHASONE DIPROPIONATE [Concomitant]
     Active Substance: BECLOMETHASONE DIPROPIONATE
     Indication: Product used for unknown indication
     Dosage: TO BOTH NOSTRILS TWICE A DAY, WHEN S,
     Route: 045
     Dates: start: 20220413
  3. BECLOMETHASONE DIPROPIONATE [Concomitant]
     Active Substance: BECLOMETHASONE DIPROPIONATE
     Indication: Product used for unknown indication
     Dosage: 4 DOSAGE FORMS DAILY; TWO PUFFS TWICE DAILY,
     Dates: start: 20190802, end: 20221201
  4. HYDROCORTISONE [Concomitant]
     Active Substance: HYDROCORTISONE
     Indication: Product used for unknown indication
     Route: 061
     Dates: start: 20221124, end: 20221222
  5. PREDNISOLONE [Concomitant]
     Active Substance: PREDNISOLONE
     Indication: Product used for unknown indication
     Dosage: 30 MILLIGRAM DAILY; FOR 3 DAYS,
     Dates: start: 20221219, end: 20230116
  6. ALBUTEROL [Concomitant]
     Active Substance: ALBUTEROL
     Indication: Product used for unknown indication
     Dosage: TAKE ONE OR TWO PUFFS FOR BREATHL...
     Dates: start: 20221201
  7. ALBUTEROL [Concomitant]
     Active Substance: ALBUTEROL
     Indication: Product used for unknown indication
     Dosage: TAKE ONE OR TWO PUFFS FOR BREATHL,
     Dates: start: 20190802, end: 20221201
  8. SOPROBEC [Concomitant]
     Indication: Product used for unknown indication
     Dosage: 4 DOSAGE FORMS DAILY; PLEASE RETURN YOUR EMPTY,
     Dates: start: 20221201, end: 20230105
  9. SYMBICORT [Concomitant]
     Active Substance: BUDESONIDE\FORMOTEROL FUMARATE DIHYDRATE
     Indication: Product used for unknown indication
     Dosage: 2 DOSAGE FORMS DAILY; PLEASE RETURN,
     Dates: start: 20230105

REACTIONS (2)
  - Dry skin [Unknown]
  - Rash [Recovered/Resolved]
